FAERS Safety Report 5267899-0 (Version None)
Quarter: 2007Q1

REPORT INFORMATION
  Report Type: 
  Country: None (occurrence: None)
  Receive Date: 20061213
  Receipt Date: 20040602
  Transmission Date: 20070707
  Serious: No
  Sender: FDA-Public Use
  Company Number: 2004UW07512

PATIENT
  Age: 70 Year
  Sex: Male
  Weight: 115.2136 kg

DRUGS (7)
  1. IRESSA [Suspect]
     Indication: NON-SMALL CELL LUNG CANCER
     Dosage: 250 MG QD PO
     Route: 048
     Dates: start: 20040219, end: 20040415
  2. PREDNISONE [Concomitant]
  3. POTASSIUM ACETATE [Concomitant]
  4. VITAMINS [Concomitant]
  5. DIURETIC [Concomitant]
  6. RANITIDINE [Concomitant]
  7. XALATAN [Concomitant]

REACTIONS (4)
  - DERMATITIS ACNEIFORM [None]
  - MALIGNANT NEOPLASM PROGRESSION [None]
  - PRODUCTIVE COUGH [None]
  - PYREXIA [None]
